FAERS Safety Report 23816681 (Version 1)
Quarter: 2024Q2

REPORT INFORMATION
  Report Type: Spontaneous
  Country: US (occurrence: US)
  Receive Date: 20240504
  Receipt Date: 20240504
  Transmission Date: 20240716
  Serious: Yes (Other)
  Sender: FDA-Public Use
  Company Number: US-KOANAAP-SML-US-2024-00349

PATIENT
  Age: 62 Year
  Sex: Female

DRUGS (4)
  1. APREMILAST [Suspect]
     Active Substance: APREMILAST
     Indication: Psoriasis
  2. ETANERCEPT [Suspect]
     Active Substance: ETANERCEPT
     Indication: Psoriasis
  3. ADALIMUMAB [Suspect]
     Active Substance: ADALIMUMAB\ISOPROPYL ALCOHOL
     Indication: Psoriasis
  4. METHOTREXATE [Suspect]
     Active Substance: METHOTREXATE
     Indication: Psoriasis

REACTIONS (1)
  - Drug ineffective [Unknown]
